FAERS Safety Report 5196185-2 (Version None)
Quarter: 2006Q4

REPORT INFORMATION
  Report Type: 
  Country: None (occurrence: None)
  Receive Date: 20061222
  Receipt Date: 20061214
  Transmission Date: 20070319
  Serious: Yes (Other)
  Sender: FDA-Public Use
  Company Number: HQWYE100514DEC06

PATIENT
  Age: 58 Year
  Sex: Male

DRUGS (2)
  1. PANTOPRAZOLE SODIUM [Suspect]
     Dosage: ^DF^
     Route: 048
     Dates: start: 20060405, end: 20060406
  2. VOLTAREN [Concomitant]

REACTIONS (2)
  - HEPATIC NECROSIS [None]
  - HEPATITIS [None]
